FAERS Safety Report 12278202 (Version 1)
Quarter: 2016Q2

REPORT INFORMATION
  Report Type: Spontaneous
  Country: US (occurrence: US)
  Receive Date: 20160418
  Receipt Date: 20160418
  Transmission Date: 20160815
  Serious: No
  Sender: FDA-Public Use
  Company Number: US-B.I. PHARMACEUTICALS,INC./RIDGEFIELD-2016-BI-21026BP

PATIENT
  Age: 64 Year
  Sex: Male
  Weight: 117.93 kg

DRUGS (1)
  1. JARDIANCE [Suspect]
     Active Substance: EMPAGLIFLOZIN
     Indication: TYPE 2 DIABETES MELLITUS
     Route: 065
     Dates: start: 201603

REACTIONS (2)
  - Renal pain [Unknown]
  - Renal pain [Recovered/Resolved]

NARRATIVE: CASE EVENT DATE: 201603
